FAERS Safety Report 4290882-9 (Version None)
Quarter: 2004Q1

REPORT INFORMATION
  Report Type: 
  Country: None (occurrence: None)
  Receive Date: 20040209
  Receipt Date: 20040128
  Transmission Date: 20041129
  Serious: Yes (Other)
  Sender: FDA-Public Use
  Company Number: 2004005974

PATIENT
  Sex: Male

DRUGS (1)
  1. CHLORAMPHENICOL/DESOXYRIBONUCL/FIBRINOLYSIN (CHLORAMPHENICOL, DESOXYRI [Suspect]
     Indication: ILL-DEFINED DISORDER
     Dosage: TOPICAL
     Route: 061

REACTIONS (4)
  - CONDITION AGGRAVATED [None]
  - DIFFICULTY IN WALKING [None]
  - SKIN ULCER [None]
  - TENDON DISORDER [None]
